FAERS Safety Report 21995878 (Version 2)
Quarter: 2023Q1

REPORT INFORMATION
  Report Type: Spontaneous
  Country: US (occurrence: US)
  Receive Date: 20230215
  Receipt Date: 20230220
  Transmission Date: 20230418
  Serious: No
  Sender: FDA-Public Use
  Company Number: US-AMGEN-USASP2023025562

PATIENT
  Age: 79 Year
  Sex: Male

DRUGS (22)
  1. OTEZLA [Suspect]
     Active Substance: APREMILAST
     Indication: Psoriasis
     Dosage: 30 MILLIGRAM, BID
     Route: 048
     Dates: start: 20221020, end: 20230209
  2. REPATHA [Suspect]
     Active Substance: EVOLOCUMAB
     Indication: Product used for unknown indication
     Dosage: UNK
     Route: 065
  3. ALBUTEROL [Concomitant]
     Active Substance: ALBUTEROL
  4. ALFUZOSIN [Concomitant]
     Active Substance: ALFUZOSIN
  5. AMITRIPTYLINE [Concomitant]
     Active Substance: AMITRIPTYLINE
  6. AMLODIPINE [Concomitant]
     Active Substance: AMLODIPINE BESYLATE
  7. BETAMETHASONE [Concomitant]
     Active Substance: BETAMETHASONE
  8. CALCIPOTRIENE [Concomitant]
     Active Substance: CALCIPOTRIENE
  9. DEXAMETHASONE [Concomitant]
     Active Substance: DEXAMETHASONE
  10. DICLOFENAC [Concomitant]
     Active Substance: DICLOFENAC
     Dosage: UNK
  11. ESCITALOPRAM [Concomitant]
     Active Substance: ESCITALOPRAM OXALATE
  12. EZETIMIBE [Concomitant]
     Active Substance: EZETIMIBE
  13. HYDROXYZINE [Concomitant]
     Active Substance: HYDROXYZINE HYDROCHLORIDE
  14. LOSARTAN [Concomitant]
     Active Substance: LOSARTAN
  15. LOVASTATIN [Concomitant]
     Active Substance: LOVASTATIN
  16. METOPROLOL [Concomitant]
     Active Substance: METOPROLOL
  17. MUPIROCIN [Concomitant]
     Active Substance: MUPIROCIN
  18. NITROGLYCERIN [Concomitant]
     Active Substance: NITROGLYCERIN
  19. PANTOPRAZOLE [Concomitant]
     Active Substance: PANTOPRAZOLE
  20. RANOLAZINE [Concomitant]
     Active Substance: RANOLAZINE
  21. TRIAMCINOLONE [Concomitant]
     Active Substance: TRIAMCINOLONE
  22. VITAMIN D2 [Concomitant]
     Active Substance: ERGOCALCIFEROL
     Dosage: 50000 UNIT

REACTIONS (1)
  - Drug ineffective [Unknown]

NARRATIVE: CASE EVENT DATE: 20230209
